FAERS Safety Report 16992239 (Version 3)
Quarter: 2020Q3

REPORT INFORMATION
  Report Type: Spontaneous
  Country: US (occurrence: US)
  Receive Date: 20191105
  Receipt Date: 20200804
  Transmission Date: 20201102
  Serious: Yes (Hospitalization, Other)
  Sender: FDA-Public Use
  Company Number: US-SA-2019SA304388

PATIENT

DRUGS (1)
  1. DUPIXENT [Suspect]
     Active Substance: DUPILUMAB
     Indication: ASTHMA
     Dosage: 200 MG, QOW
     Route: 058
     Dates: start: 20191010

REACTIONS (7)
  - Food poisoning [Recovering/Resolving]
  - Vomiting [Recovering/Resolving]
  - Influenza like illness [Recovering/Resolving]
  - Wheezing [Unknown]
  - Diarrhoea [Recovering/Resolving]
  - Blood glucose abnormal [Unknown]
  - Depressed level of consciousness [Recovering/Resolving]

NARRATIVE: CASE EVENT DATE: 20191029
